FAERS Safety Report 8380317-9 (Version None)
Quarter: 2012Q2

REPORT INFORMATION
  Report Type: 
  Country: None (occurrence: None)
  Receive Date: 20120523
  Receipt Date: 20120516
  Transmission Date: 20120825
  Serious: Yes (Life-Threatening, Other)
  Sender: FDA-Public Use
  Company Number: US-PFIZER INC-2012120191

PATIENT
  Sex: Female

DRUGS (7)
  1. NEURONTIN [Concomitant]
     Dosage: UNK
  2. VENLAFAXINE HCL [Suspect]
     Indication: MENTAL DISORDER
     Dosage: UNK
  3. ALPRAZOLAM [Concomitant]
     Dosage: UNK
  4. SYNTHROID [Concomitant]
     Dosage: UNK
  5. LIPITOR [Concomitant]
     Dosage: UNK
  6. METOPROLOL [Concomitant]
     Dosage: UNK
  7. TOPAMAX [Concomitant]
     Dosage: UNK

REACTIONS (4)
  - DYSPNOEA [None]
  - HYPERHIDROSIS [None]
  - DISORIENTATION [None]
  - DIZZINESS [None]
